APPROVED DRUG PRODUCT: DIVALPROEX SODIUM
Active Ingredient: DIVALPROEX SODIUM
Strength: EQ 250MG VALPROIC ACID
Dosage Form/Route: TABLET, EXTENDED RELEASE;ORAL
Application: A214462 | Product #001
Applicant: YICHANG HUMANWELL PHARMACEUTICAL CO LTD
Approved: Mar 15, 2021 | RLD: No | RS: No | Type: DISCN